FAERS Safety Report 23947192 (Version 1)
Quarter: 2024Q2

REPORT INFORMATION
  Report Type: Spontaneous
  Country: US (occurrence: US)
  Receive Date: 20240606
  Receipt Date: 20240606
  Transmission Date: 20240716
  Serious: No
  Sender: FDA-Public Use
  Company Number: US-MYCOVIA PHARMACEUTICALS, INC.-US-MYC-24-00002

PATIENT

DRUGS (1)
  1. VIVJOA [Suspect]
     Active Substance: OTESECONAZOLE
     Indication: Infection
     Dosage: UNK
     Route: 065

REACTIONS (1)
  - Drug ineffective [Not Recovered/Not Resolved]
